FAERS Safety Report 13133143 (Version 2)
Quarter: 2017Q1

REPORT INFORMATION
  Report Type: Report from Study
  Country: PL (occurrence: PL)
  Receive Date: 20170120
  Receipt Date: 20170203
  Transmission Date: 20170428
  Serious: Yes (Hospitalization, Other)
  Sender: FDA-Public Use
  Company Number: PL-ASTELLAS-2017US002469

PATIENT
  Age: 15 Year
  Sex: Male
  Weight: 60 kg

DRUGS (7)
  1. TACROLIMUS. [Suspect]
     Active Substance: TACROLIMUS
     Indication: DERMATITIS ATOPIC
     Dosage: 0.03 %, ONCE WEEKLY
     Route: 061
     Dates: start: 20080606, end: 2015
  2. ZYX                                /00052302/ [Concomitant]
     Indication: DERMATITIS ATOPIC
     Dosage: UNK UNK, UNKNOWN FREQ.
     Route: 065
  3. MILUKANTE [Concomitant]
     Indication: DERMATITIS ATOPIC
     Dosage: UNK UNK, UNKNOWN FREQ.
     Route: 065
  4. MOMETASONE [Concomitant]
     Active Substance: MOMETASONE
     Indication: HYPERSENSITIVITY
     Route: 065
     Dates: start: 2015
  5. ALVESCO [Concomitant]
     Active Substance: CICLESONIDE
     Indication: ASTHMA
     Dosage: 0.16 MG, UNKNOWN FREQ.
     Route: 065
     Dates: start: 2015
  6. HITAXA [Concomitant]
     Indication: DERMATITIS ATOPIC
     Dosage: UNK, UNKNOWN FREQ.
     Route: 065
     Dates: start: 2016
  7. HITAXA [Concomitant]
     Indication: HYPERSENSITIVITY

REACTIONS (1)
  - Bone cancer [Unknown]

NARRATIVE: CASE EVENT DATE: 20170102
